FAERS Safety Report 4773971-1 (Version None)
Quarter: 2005Q3

REPORT INFORMATION
  Report Type: 
  Country: None (occurrence: None)
  Receive Date: 20050920
  Receipt Date: 20050624
  Transmission Date: 20060218
  Serious: Yes (Hospitalization)
  Sender: FDA-Public Use
  Company Number: FR-SANOFI-SYNTHELABO-A02200501676

PATIENT
  Sex: Male
  Weight: 84 kg

DRUGS (9)
  1. ELOXATIN [Suspect]
     Indication: COLON CANCER
     Route: 042
     Dates: start: 20050623, end: 20050623
  2. LEDERFOLINE [Concomitant]
     Indication: COLON CANCER
     Route: 042
     Dates: start: 20050623, end: 20050623
  3. FLUOROURACIL [Concomitant]
     Indication: COLON CANCER
     Route: 042
     Dates: start: 20050623, end: 20050623
  4. KYTRIL [Concomitant]
     Route: 042
  5. SOLU-MEDROL [Concomitant]
     Indication: DRUG USE FOR UNKNOWN INDICATION
     Route: 042
  6. CALCIUM GLUCONATE [Concomitant]
     Route: 065
  7. MAGNESIUM SULFATE [Concomitant]
     Indication: DRUG USE FOR UNKNOWN INDICATION
     Route: 065
  8. PREVISCAN [Concomitant]
     Indication: THROMBOSIS
     Route: 048
  9. SOTALOL HCL [Concomitant]
     Indication: HYPERTENSION
     Route: 048

REACTIONS (6)
  - CYANOSIS [None]
  - DRUG HYPERSENSITIVITY [None]
  - DYSPNOEA [None]
  - ERYTHEMA [None]
  - LARYNGOSPASM [None]
  - PRURITUS [None]
